FAERS Safety Report 25910103 (Version 1)
Quarter: 2025Q4

REPORT INFORMATION
  Report Type: Spontaneous
  Country: EU (occurrence: EU)
  Receive Date: 20251012
  Receipt Date: 20251012
  Transmission Date: 20260117
  Serious: Yes (Hospitalization)
  Sender: TEVA
  Company Number: None

PATIENT
  Age: 60 Year
  Sex: Male
  Weight: 88 kg

DRUGS (6)
  1. GABAPENTIN [Interacting]
     Active Substance: GABAPENTIN
     Indication: Suicide attempt
     Dosage: TIME INTERVAL: TOTAL: 27 GRAMS SINGLE DOSE, GABAPENTIN (2641A)
     Route: 048
     Dates: start: 20250811, end: 20250811
  2. GABAPENTIN [Concomitant]
     Active Substance: GABAPENTIN
     Indication: Pain
     Dosage: 300MG 1-0-0.5, GABAPENTIN (2641A)
     Route: 048
     Dates: start: 20180523, end: 20250811
  3. RIVOTRIL [Interacting]
     Active Substance: CLONAZEPAM
     Indication: Suicide attempt
     Dosage: TIME INTERVAL: TOTAL: 30 MG SINGLE DOSE, 60 TABLETS
     Route: 048
     Dates: start: 20250811, end: 20250811
  4. TRAMADOL [Concomitant]
     Active Substance: TRAMADOL
     Indication: Pain
     Dosage: 50MG 2-0-2, TRAMADOL (2389A)
     Route: 048
     Dates: start: 20180604, end: 20250811
  5. RIVOTRIL [Concomitant]
     Active Substance: CLONAZEPAM
     Indication: Drug dependence
     Dosage: 0.5MG 1-0-1, 60 TABLETS
     Route: 048
     Dates: start: 20180504, end: 20250811
  6. TRAMADOL [Interacting]
     Active Substance: TRAMADOL
     Indication: Suicide attempt
     Dosage: TIME INTERVAL: TOTAL: 3G SINGLE DOSE, TRAMADOL (2389A)
     Route: 048
     Dates: start: 20250811, end: 20250811

REACTIONS (5)
  - Hallucination, visual [Recovered/Resolved]
  - Intentional overdose [Recovered/Resolved]
  - Somnolence [Recovered/Resolved]
  - Blood creatine phosphokinase increased [Recovered/Resolved]
  - Acute kidney injury [Recovered/Resolved]

NARRATIVE: CASE EVENT DATE: 20250811
